FAERS Safety Report 20735933 (Version 1)
Quarter: 2022Q2

REPORT INFORMATION
  Report Type: Report from Study
  Country: US (occurrence: None)
  Receive Date: 20220421
  Receipt Date: 20220421
  Transmission Date: 20220720
  Serious: Yes (Hospitalization)
  Sender: FDA-Public Use
  Company Number: US-Eisai Medical Research-EC-2022-112804

PATIENT
  Age: 81 Year
  Sex: Female
  Weight: 54 kg

DRUGS (6)
  1. LENVIMA [Suspect]
     Active Substance: LENVATINIB
     Indication: Thyroid cancer
     Route: 048
     Dates: start: 2022, end: 20220414
  2. MCT OIL [Concomitant]
     Dosage: 14G-120/15 OIL
  3. ALPHA LIPOIC ACID [Concomitant]
     Active Substance: .ALPHA.-LIPOIC ACID
  4. UNSPECIFIED INGREDIENT [Concomitant]
     Active Substance: UNSPECIFIED INGREDIENT
  5. COENZYME Q10 [Concomitant]
     Active Substance: DIETARY SUPPLEMENT\UBIDECARENONE
  6. GAS-X [Concomitant]
     Active Substance: DIMETHICONE

REACTIONS (2)
  - Hypokinesia [Unknown]
  - Gait inability [Unknown]

NARRATIVE: CASE EVENT DATE: 20220414
